FAERS Safety Report 17055114 (Version 1)
Quarter: 2019Q4

REPORT INFORMATION
  Report Type: Spontaneous
  Country: GB (occurrence: FR)
  Receive Date: 20191120
  Receipt Date: 20191120
  Transmission Date: 20200122
  Serious: Yes (Hospitalization)
  Sender: FDA-Public Use
  Company Number: FR-BAYER-2019-203206

PATIENT
  Age: 72 Year
  Sex: Male
  Weight: 86 kg

DRUGS (5)
  1. GLUCOBAY [Suspect]
     Active Substance: ACARBOSE
     Dosage: 300 MG, QD
     Route: 048
     Dates: start: 20110120, end: 20190824
  2. XARELTO [Concomitant]
     Active Substance: RIVAROXABAN
  3. GLICLAZIDE [Concomitant]
     Active Substance: GLICLAZIDE
  4. ATENOLOL. [Concomitant]
     Active Substance: ATENOLOL
  5. IRBESARTAN. [Concomitant]
     Active Substance: IRBESARTAN

REACTIONS (2)
  - Volvulus [Recovered/Resolved]
  - Pneumatosis intestinalis [Not Recovered/Not Resolved]

NARRATIVE: CASE EVENT DATE: 20190609
